FAERS Safety Report 5887906-1 (Version None)
Quarter: 2008Q3

REPORT INFORMATION
  Report Type: 
  Country: None (occurrence: None)
  Receive Date: 20080918
  Receipt Date: 20080915
  Transmission Date: 20090109
  Serious: Yes (Hospitalization)
  Sender: FDA-Public Use
  Company Number: A0747488A

PATIENT
  Age: 53 Year
  Sex: Female

DRUGS (13)
  1. DYNACIRC CR [Suspect]
     Indication: HYPERTENSION
     Dosage: 10MG PER DAY
     Route: 048
     Dates: start: 20070101, end: 20080907
  2. NORVASC [Suspect]
     Indication: HYPERTENSION
     Dosage: 10MG PER DAY
     Route: 048
     Dates: start: 20080909
  3. TOPROL-XL [Suspect]
     Indication: HYPERTENSION
     Dosage: 75MG PER DAY
     Route: 048
     Dates: start: 20050101
  4. PLAVIX [Concomitant]
  5. SPIRONOLACTONE [Concomitant]
  6. FUROSEMIDE [Concomitant]
  7. PANTOPRAZOLE SODIUM [Concomitant]
  8. HYDROCHLOROTHIAZIDE [Concomitant]
  9. POTASSIUM CHLORIDE [Concomitant]
  10. CYCLOBENZAPRINE HCL [Concomitant]
  11. XANAX [Concomitant]
  12. HYDROCODONE BITARTRATE [Concomitant]
  13. ALBUTEROL [Concomitant]

REACTIONS (5)
  - BLOOD PRESSURE INCREASED [None]
  - DRUG INEFFECTIVE [None]
  - HYPOXIA [None]
  - SKIN DISCOLOURATION [None]
  - THERAPEUTIC RESPONSE UNEXPECTED [None]
